FAERS Safety Report 4926394-6 (Version None)
Quarter: 2006Q1

REPORT INFORMATION
  Report Type: 
  Country: None (occurrence: None)
  Receive Date: 20060228
  Receipt Date: 20051111
  Transmission Date: 20060701
  Serious: No
  Sender: FDA-Public Use
  Company Number: US-GLAXOSMITHKLINE-A0581947A

PATIENT
  Age: 66 Year
  Sex: Male

DRUGS (3)
  1. LAMICTAL [Suspect]
     Indication: BIPOLAR DISORDER
     Dosage: 100MG PER DAY
     Route: 048
  2. WELLBUTRIN XL [Suspect]
     Indication: DEPRESSION
     Dosage: 150MG PER DAY
     Route: 048
  3. WELLBUTRIN XL [Concomitant]

REACTIONS (5)
  - CHEST PAIN [None]
  - CONSTIPATION [None]
  - DRUG INEFFECTIVE [None]
  - LIBIDO DECREASED [None]
  - MYALGIA [None]
